FAERS Safety Report 17885344 (Version 1)
Quarter: 2020Q2

REPORT INFORMATION
  Report Type: Spontaneous
  Country: JP (occurrence: JP)
  Receive Date: 20200611
  Receipt Date: 20200611
  Transmission Date: 20200714
  Serious: Yes (Hospitalization, Other)
  Sender: FDA-Public Use
  Company Number: JP-PFIZER INC-2020223015

PATIENT
  Sex: Male

DRUGS (7)
  1. LYRICA [Suspect]
     Active Substance: PREGABALIN
     Dosage: UNK
     Route: 048
     Dates: start: 2020, end: 2020
  2. LYRICA [Suspect]
     Active Substance: PREGABALIN
     Dosage: 25 MG, 2X/DAY (1 TABLET OF 25 MG EACH MORNING AND EVENING RESPECTIVELY)
     Route: 048
     Dates: start: 20200509, end: 202005
  3. LYRICA [Suspect]
     Active Substance: PREGABALIN
     Dosage: 4 DF (4 TABLETS)
     Route: 048
     Dates: start: 202006
  4. LYRICA [Suspect]
     Active Substance: PREGABALIN
     Dosage: 50 MG, 2X/DAY (2 TABLETS EACH MORNING AND EVENING RESPECTIVELY)
     Route: 048
     Dates: start: 20200605, end: 202006
  5. LYRICA [Suspect]
     Active Substance: PREGABALIN
     Dosage: 1 DF, 2X/DAY (ONE TABLET EACH MORNING AND EVENING RESPECTIVELY)
     Route: 048
     Dates: start: 202001, end: 2020
  6. LYRICA [Suspect]
     Active Substance: PREGABALIN
     Dosage: 75 MG, 2X/DAY (75 MG (1 TABLET IN THE MORNING, 1 TABLET IN THE EVENING))
     Route: 048
     Dates: start: 2020, end: 2020
  7. LYRICA [Suspect]
     Active Substance: PREGABALIN
     Dosage: 2 DF, 2X/DAY (2 TABLET EACH MORNING AND EVENING RESPECTIVELY)
     Route: 048
     Dates: start: 2020, end: 2020

REACTIONS (12)
  - Myalgia [Unknown]
  - Tinnitus [Unknown]
  - Dizziness [Unknown]
  - Urine output decreased [Unknown]
  - Feeling hot [Unknown]
  - Tendon rupture [Unknown]
  - Tooth disorder [Unknown]
  - Musculoskeletal pain [Unknown]
  - Malaise [Unknown]
  - Physical deconditioning [Unknown]
  - Protein urine present [Unknown]
  - Tongue disorder [Unknown]

NARRATIVE: CASE EVENT DATE: 2020
